FAERS Safety Report 25582939 (Version 1)
Quarter: 2025Q3

REPORT INFORMATION
  Report Type: Report from Study
  Country: US (occurrence: US)
  Receive Date: 20250721
  Receipt Date: 20250721
  Transmission Date: 20251020
  Serious: Yes (Other)
  Sender: ETON PHARMACEUTICALS, INC
  Company Number: US-ETON PHARMACEUTICALS, INC-2025ETO000295

PATIENT

DRUGS (5)
  1. GALZIN [Suspect]
     Active Substance: ZINC ACETATE
     Indication: Hepato-lenticular degeneration
     Dosage: 50 MILLIGRAM, BID
     Route: 048
     Dates: start: 20250625, end: 20250628
  2. GALZIN [Suspect]
     Active Substance: ZINC ACETATE
     Route: 048
     Dates: start: 20250705
  3. GALZIN [Suspect]
     Active Substance: ZINC ACETATE
     Dosage: 50 MILLIGRAM, QD
     Route: 048
     Dates: start: 20250706, end: 20250706
  4. LIALDA [Concomitant]
     Active Substance: MESALAMINE
     Indication: Product used for unknown indication
  5. ERRIN [ERYTHROMYCIN] [Concomitant]
     Indication: Product used for unknown indication

REACTIONS (5)
  - Crohn^s disease [Unknown]
  - Haematochezia [Recovered/Resolved]
  - Abdominal pain upper [Not Recovered/Not Resolved]
  - Diarrhoea [Recovered/Resolved]
  - Intentional product misuse [Unknown]

NARRATIVE: CASE EVENT DATE: 20250628
